FAERS Safety Report 8550577-X (Version None)
Quarter: 2012Q3

REPORT INFORMATION
  Report Type: 
  Country: None (occurrence: None)
  Receive Date: 20120718
  Receipt Date: 20120706
  Transmission Date: 20120928
  Serious: Yes (Other)
  Sender: FDA-Public Use
  Company Number: AUR-APL-2012-02965

PATIENT
  Age: 84 Year
  Sex: Female
  Weight: 72.6 kg

DRUGS (6)
  1. ALENDRONIC ACID (ALENDRONIC ACID) [Suspect]
     Indication: HIP FRACTURE
     Dosage: 10 MG (70 MG, 1 IN 1 WK)
     Dates: start: 20120315, end: 20120626
  2. SIMVASTATIN [Concomitant]
  3. NIFEDIPINE [Concomitant]
  4. OMEPRAZOLE [Concomitant]
  5. ADCAL-DE (LEKOVIT CA) [Concomitant]
  6. ATENOLOL [Concomitant]

REACTIONS (3)
  - PRURITUS [None]
  - RASH MACULO-PAPULAR [None]
  - RASH ERYTHEMATOUS [None]
